FAERS Safety Report 14780706 (Version 2)
Quarter: 2018Q2

REPORT INFORMATION
  Report Type: Spontaneous
  Country: AU (occurrence: AU)
  Receive Date: 20180419
  Receipt Date: 20180427
  Transmission Date: 20180711
  Serious: Yes (Other)
  Sender: FDA-Public Use
  Company Number: AU-TEVA-2018-AU-876857

PATIENT
  Sex: Female

DRUGS (2)
  1. DUROMINE [Concomitant]
     Active Substance: PHENTERMINE
  2. NEOTIGASON [Suspect]
     Active Substance: ACITRETIN
     Indication: PARAPSORIASIS
     Dosage: NEOTIGASON 10MG
     Route: 048
     Dates: start: 20180206

REACTIONS (9)
  - Bone pain [Unknown]
  - Arthralgia [Unknown]
  - Back pain [Not Recovered/Not Resolved]
  - Alopecia [Not Recovered/Not Resolved]
  - Toxicity to various agents [Unknown]
  - Dry skin [Unknown]
  - Skin exfoliation [Unknown]
  - Adverse reaction [Unknown]
  - Sticky skin [Unknown]
